FAERS Safety Report 7206029-2 (Version None)
Quarter: 2010Q4

REPORT INFORMATION
  Report Type: 
  Country: None (occurrence: None)
  Receive Date: 20101220
  Receipt Date: 20101207
  Transmission Date: 20110411
  Serious: Yes (Hospitalization)
  Sender: FDA-Public Use
  Company Number: DSA_44503_2010

PATIENT
  Sex: Female
  Weight: 58.6 kg

DRUGS (18)
  1. XENAZINE (XENAZINE-TETRABENAZINE) (NOT SPECIFIED) [Suspect]
     Indication: DYSKINESIA
     Dosage: (37.5 MG TID ORAL), (37.5 MG BID ORAL), (37.5 MG IN THE MORNING AND EVENING AND 50 MG AT NOON ORAL)
     Route: 048
     Dates: start: 20100101, end: 20100101
  2. XENAZINE (XENAZINE-TETRABENAZINE) (NOT SPECIFIED) [Suspect]
     Indication: DYSKINESIA
     Dosage: (37.5 MG TID ORAL), (37.5 MG BID ORAL), (37.5 MG IN THE MORNING AND EVENING AND 50 MG AT NOON ORAL)
     Route: 048
     Dates: start: 20100906, end: 20100101
  3. XENAZINE (XENAZINE-TETRABENAZINE) (NOT SPECIFIED) [Suspect]
     Indication: DYSKINESIA
     Dosage: (37.5 MG TID ORAL), (37.5 MG BID ORAL), (37.5 MG IN THE MORNING AND EVENING AND 50 MG AT NOON ORAL)
     Route: 048
     Dates: start: 20101106, end: 20101118
  4. XENAZINE (XENAZINE-TETRABENAZINE) (NOT SPECIFIED) [Suspect]
     Indication: DYSKINESIA
     Dosage: (37.5 MG TID ORAL), (37.5 MG BID ORAL), (37.5 MG IN THE MORNING AND EVENING AND 50 MG AT NOON ORAL)
     Route: 048
     Dates: start: 20101101
  5. NEURONTIN [Suspect]
     Indication: PRODUCT USED FOR UNKNOWN INDICATION
     Dosage: (100 MG QID ORAL)
     Route: 048
     Dates: start: 20101118
  6. ZOLPIDEM [Suspect]
     Indication: PRODUCT USED FOR UNKNOWN INDICATION
     Dosage: (10 MG ORAL), (10 MG QD)
     Route: 048
     Dates: start: 20101105, end: 20101105
  7. ZOLPIDEM [Suspect]
     Indication: PRODUCT USED FOR UNKNOWN INDICATION
     Dosage: (10 MG ORAL), (10 MG QD)
     Route: 048
     Dates: start: 20101114
  8. ASPIRIN [Concomitant]
  9. AMLODIPINE [Concomitant]
  10. SORTIS [Concomitant]
  11. BLOPRESS [Concomitant]
  12. NEXIUM [Concomitant]
  13. GLUCOPHAGE [Concomitant]
  14. DIAMICRON [Concomitant]
  15. TEMESTA /00273201/ [Concomitant]
  16. SODIUM CHLORIDE [Concomitant]
  17. POTASSIUM CHLORIDE [Concomitant]
  18. DORMICUM /00634101/ [Concomitant]

REACTIONS (34)
  - AGITATION [None]
  - AKATHISIA [None]
  - ANXIETY [None]
  - AREFLEXIA [None]
  - BLOOD GLUCOSE INCREASED [None]
  - COMA [None]
  - CONFUSIONAL STATE [None]
  - DECREASED APPETITE [None]
  - DEPRESSED LEVEL OF CONSCIOUSNESS [None]
  - DEPRESSION [None]
  - DISORIENTATION [None]
  - FALL [None]
  - FATIGUE [None]
  - HEAD INJURY [None]
  - HOSTILITY [None]
  - HYPERKINESIA [None]
  - HYPERREFLEXIA [None]
  - HYPONATRAEMIA [None]
  - INSOMNIA [None]
  - MENTAL DISORDER [None]
  - MUSCLE SPASMS [None]
  - MUSCULAR WEAKNESS [None]
  - MYDRIASIS [None]
  - NAUSEA [None]
  - NERVOUSNESS [None]
  - OFF LABEL USE [None]
  - OVERDOSE [None]
  - PARAESTHESIA [None]
  - PARKINSONISM [None]
  - RESTLESSNESS [None]
  - SLEEP DISORDER [None]
  - SOMNOLENCE [None]
  - VERTIGO [None]
  - VOMITING [None]
